FAERS Safety Report 14162508 (Version 1)
Quarter: 2017Q4

REPORT INFORMATION
  Report Type: Spontaneous
  Country: US (occurrence: US)
  Receive Date: 20171106
  Receipt Date: 20171106
  Transmission Date: 20180321
  Serious: Yes (Hospitalization, Other)
  Sender: FDA-Public Use
  Company Number: US-PFIZER INC-2017473038

PATIENT
  Sex: Female

DRUGS (2)
  1. DOCETAXEL. [Suspect]
     Active Substance: DOCETAXEL
     Dosage: 75 MG/M2, CYCLIC EVERY 4 WEEKS
     Dates: start: 2013
  2. DOCETAXEL. [Suspect]
     Active Substance: DOCETAXEL
     Indication: LUNG NEOPLASM MALIGNANT
     Dosage: 75 MG/M2, CYCLIC EVERY 3 WEEKS
     Dates: start: 2013

REACTIONS (3)
  - Febrile neutropenia [Unknown]
  - Drug intolerance [Unknown]
  - Neutropenia [Unknown]
